FAERS Safety Report 9249801 (Version 4)
Quarter: 2014Q4

REPORT INFORMATION
  Report Type: Spontaneous
  Country: US (occurrence: US)
  Receive Date: 20130423
  Receipt Date: 20141020
  Transmission Date: 20150529
  Serious: No
  Sender: FDA-Public Use
  Company Number: US-009507513-1304USA013910

PATIENT
  Sex: Male
  Weight: 99.32 kg

DRUGS (1)
  1. PROPECIA [Suspect]
     Active Substance: FINASTERIDE
     Indication: ALOPECIA
     Dosage: 1 MG, QD
     Route: 048
     Dates: start: 20090808, end: 20120616

REACTIONS (8)
  - Sexual dysfunction [Not Recovered/Not Resolved]
  - Hypogonadism [Unknown]
  - Psychiatric symptom [Unknown]
  - Libido decreased [Unknown]
  - Semen volume decreased [Unknown]
  - Hypertension [Unknown]
  - Erectile dysfunction [Recovered/Resolved]
  - Organic erectile dysfunction [Unknown]

NARRATIVE: CASE EVENT DATE: 2010
